FAERS Safety Report 20292252 (Version 1)
Quarter: 2022Q1

REPORT INFORMATION
  Report Type: Spontaneous
  Country: US (occurrence: US)
  Receive Date: 20220104
  Receipt Date: 20220104
  Transmission Date: 20220423
  Serious: No
  Sender: FDA-Public Use
  Company Number: US-COLLEGIUM PHARMACEUTICAL, INC.-2021CGM00221

PATIENT
  Sex: Male

DRUGS (7)
  1. TAPENTADOL [Suspect]
     Active Substance: TAPENTADOL
  2. OMEPRAZOLE [Concomitant]
     Active Substance: OMEPRAZOLE
  3. FLOMAX [Concomitant]
     Active Substance: TAMSULOSIN HYDROCHLORIDE
  4. NORCO [Concomitant]
     Active Substance: ACETAMINOPHEN\HYDROCODONE BITARTRATE
  5. NEURONTIN [Concomitant]
     Active Substance: GABAPENTIN
  6. BACLOFEN [Concomitant]
     Active Substance: BACLOFEN
  7. AMANTADINE [Concomitant]
     Active Substance: AMANTADINE

REACTIONS (1)
  - Pruritus [Unknown]
